FAERS Safety Report 13084727 (Version 1)
Quarter: 2017Q1

REPORT INFORMATION
  Report Type: Spontaneous
  Country: GB (occurrence: GB)
  Receive Date: 20170104
  Receipt Date: 20170104
  Transmission Date: 20170428
  Serious: Yes (Hospitalization, Other)
  Sender: FDA-Public Use
  Company Number: GB-VELOXIS PHARMACEUTICALS-1061515

PATIENT
  Age: 79 Year
  Sex: Female
  Weight: 65.5 kg

DRUGS (2)
  1. CLARITHROMYCIN. [Suspect]
     Active Substance: CLARITHROMYCIN
     Route: 048
     Dates: start: 20161122, end: 20161129
  2. ENVARSUS XR [Suspect]
     Active Substance: TACROLIMUS
     Indication: RENAL TRANSPLANT

REACTIONS (4)
  - Acute kidney injury [Recovering/Resolving]
  - Malaise [Unknown]
  - Immunosuppressant drug level increased [Recovering/Resolving]
  - Labelled drug-drug interaction medication error [Unknown]
